FAERS Safety Report 20084988 (Version 1)
Quarter: 2021Q4

REPORT INFORMATION
  Report Type: Spontaneous
  Country: GR (occurrence: GR)
  Receive Date: 20211118
  Receipt Date: 20211118
  Transmission Date: 20220303
  Serious: Yes (Death, Life-Threatening, Hospitalization, Other)
  Sender: FDA-Public Use
  Company Number: GR-MYLANLABS-2021M1082090

PATIENT
  Age: 82 Year
  Sex: Female

DRUGS (1)
  1. APIXABAN [Suspect]
     Active Substance: APIXABAN
     Indication: Atrial fibrillation
     Dosage: UNK

REACTIONS (8)
  - Septic shock [Fatal]
  - Sleep apnoea syndrome [Unknown]
  - Loss of consciousness [Recovered/Resolved]
  - Vomiting [Unknown]
  - Drug ineffective [Unknown]
  - Paralysis [Unknown]
  - Cerebral infarction [Unknown]
  - Cerebellar ataxia [Unknown]
